FAERS Safety Report 25543958 (Version 5)
Quarter: 2025Q4

REPORT INFORMATION
  Report Type: Report from Study
  Country: US (occurrence: None)
  Receive Date: 20250711
  Receipt Date: 20251208
  Transmission Date: 20260118
  Serious: Yes (Hospitalization, Other)
  Sender: UCB
  Company Number: US-UCBSA-2025041435

PATIENT
  Age: 68 Year

DRUGS (2)
  1. ROZANOLIXIZUMAB [Suspect]
     Active Substance: ROZANOLIXIZUMAB
     Indication: Myasthenia gravis
     Dosage: 840 MG/6 ML (VIA SUBCUTANEOUS INFUSION), ONCE WEEKLY FOR SIX WEEKS
  2. ROZANOLIXIZUMAB [Suspect]
     Active Substance: ROZANOLIXIZUMAB
     Dosage: 840 MG/6 ML (VIA SUBCUTANEOUS INFUSION), ONCE WEEKLY FOR SIX WEEKS

REACTIONS (9)
  - Insomnia [Recovering/Resolving]
  - Pyrexia [Recovering/Resolving]
  - Musculoskeletal stiffness [Not Recovered/Not Resolved]
  - Myalgia [Not Recovered/Not Resolved]
  - Headache [Recovering/Resolving]
  - Pneumonia [Unknown]
  - Myasthenia gravis [Not Recovered/Not Resolved]
  - Nausea [Recovering/Resolving]
  - Therapeutic product effect incomplete [Unknown]
